FAERS Safety Report 6330580 (Version 9)
Quarter: 2014Q3

REPORT INFORMATION
  Report Type: Spontaneous
  Country: US (occurrence: US)
  Receive Date: 20070611
  Receipt Date: 20140903
  Transmission Date: 20150326
  Serious: Yes (Hospitalization, Disabling, Other)
  Sender: FDA-Public Use
  Company Number: US-ELI_LILLY_AND_COMPANY-US200703004408

PATIENT
  Sex: Male
  Weight: 94.33 kg

DRUGS (4)
  1. ZYPREXA [Suspect]
     Active Substance: OLANZAPINE
     Dosage: 5 MG, UNK
  2. ZYPREXA [Suspect]
     Active Substance: OLANZAPINE
     Dosage: 20 MG, UNK
  3. ZYPREXA [Suspect]
     Active Substance: OLANZAPINE
     Indication: SCHIZOPHRENIA
     Dosage: 10 MG, EACH EVENING
     Dates: start: 19990401
  4. TRANXENE T-TAB [Concomitant]
     Active Substance: CLORAZEPATE DIPOTASSIUM

REACTIONS (19)
  - Gait disturbance [Unknown]
  - Drug ineffective [Unknown]
  - Glucose tolerance impaired [Unknown]
  - Mental disorder [Unknown]
  - Blood triglycerides increased [Not Recovered/Not Resolved]
  - Blood glucose increased [Unknown]
  - Pain [Unknown]
  - Scoliosis [Unknown]
  - Feeling abnormal [Not Recovered/Not Resolved]
  - Neuropathy peripheral [Not Recovered/Not Resolved]
  - Blood cholesterol increased [Unknown]
  - Increased appetite [Unknown]
  - Weight increased [Recovered/Resolved]
  - Tooth loss [Unknown]
  - Adverse event [Unknown]
  - Erectile dysfunction [Not Recovered/Not Resolved]
  - Tremor [Unknown]
  - Diabetic ketoacidosis [Unknown]
  - Restless legs syndrome [Unknown]

NARRATIVE: CASE EVENT DATE: 1999
